FAERS Safety Report 10191499 (Version 2)
Quarter: 2014Q2

REPORT INFORMATION
  Report Type: Report from Study
  Country: CA (occurrence: CA)
  Receive Date: 20140523
  Receipt Date: 20140523
  Transmission Date: 20141212
  Serious: Yes (Death)
  Sender: FDA-Public Use
  Company Number: PHHY2012CA038475

PATIENT
  Age: 60 Year
  Sex: Female

DRUGS (2)
  1. SANDOSTATIN LAR [Suspect]
     Indication: GASTRINOMA
     Dosage: 10 MG, EVERY 4 WEEKS
     Route: 030
     Dates: start: 20111216
  2. SANDOSTATIN LAR [Suspect]
     Dosage: 30 MG, QMO
     Route: 030

REACTIONS (2)
  - Death [Fatal]
  - Confusional state [Unknown]
